FAERS Safety Report 17964679 (Version 1)
Quarter: 2020Q2

REPORT INFORMATION
  Report Type: Spontaneous
  Country: FR (occurrence: FR)
  Receive Date: 20200630
  Receipt Date: 20200630
  Transmission Date: 20200714
  Serious: Yes (Congenital Anomaly)
  Sender: FDA-Public Use
  Company Number: FR-PERRIGO-20FR008604

PATIENT

DRUGS (6)
  1. CHOLURSO [Concomitant]
     Active Substance: URSODIOL
     Indication: PRODUCT USED FOR UNKNOWN INDICATION
     Route: 064
     Dates: start: 20200110, end: 20200307
  2. SUBUTEX [Suspect]
     Active Substance: BUPRENORPHINE HYDROCHLORIDE
     Indication: PRODUCT SUBSTITUTION
     Dosage: 2 DF, QD
     Route: 064
     Dates: start: 20190719, end: 20200307
  3. ACIDE FOLIQUE [Concomitant]
     Active Substance: FOLIC ACID
     Indication: PRODUCT USED FOR UNKNOWN INDICATION
     Route: 064
     Dates: start: 20190719, end: 20200307
  4. NICOTINE. [Suspect]
     Active Substance: NICOTINE
     Indication: PRODUCT SUBSTITUTION
     Dosage: INCONNUE
     Route: 064
     Dates: start: 20190719
  5. INSULINE                           /01223401/ [Concomitant]
     Active Substance: INSULIN NOS
     Indication: PRODUCT USED FOR UNKNOWN INDICATION
     Route: 064
     Dates: start: 20191106, end: 20200307
  6. VITAMIN D3 [Concomitant]
     Active Substance: CHOLECALCIFEROL
     Indication: PRODUCT USED FOR UNKNOWN INDICATION
     Route: 064
     Dates: start: 20190719, end: 20200307

REACTIONS (1)
  - Encephalocele [Not Recovered/Not Resolved]

NARRATIVE: CASE EVENT DATE: 20200331
